FAERS Safety Report 7507441-4 (Version None)
Quarter: 2011Q2

REPORT INFORMATION
  Report Type: 
  Country: None (occurrence: None)
  Receive Date: 20110526
  Receipt Date: 20110523
  Transmission Date: 20111010
  Serious: Yes (Death, Hospitalization)
  Sender: FDA-Public Use
  Company Number: PHHY2011GR44128

PATIENT
  Age: 54 Year
  Sex: Male

DRUGS (2)
  1. WARFARIN SODIUM [Suspect]
     Indication: ATRIAL FIBRILLATION
     Dosage: 5 MG, UNK
  2. WARFARIN SODIUM [Suspect]
     Dosage: 2 MG, QD

REACTIONS (13)
  - INTERNATIONAL NORMALISED RATIO INCREASED [None]
  - COMA [None]
  - PROTHROMBIN TIME PROLONGED [None]
  - MULTI-ORGAN FAILURE [None]
  - BLOOD FIBRINOGEN DECREASED [None]
  - DISSEMINATED INTRAVASCULAR COAGULATION [None]
  - THROMBOSIS [None]
  - THROMBOCYTOPENIA [None]
  - HEMIPARESIS [None]
  - CEREBRAL INFARCTION [None]
  - BRAIN OEDEMA [None]
  - FIBRIN D DIMER INCREASED [None]
  - HAEMORRHAGIC DIATHESIS [None]
